FAERS Safety Report 22235756 (Version 1)
Quarter: 2023Q2

REPORT INFORMATION
  Report Type: Spontaneous
  Country: NO (occurrence: NO)
  Receive Date: 20230420
  Receipt Date: 20230420
  Transmission Date: 20230722
  Serious: Yes (Hospitalization)
  Sender: FDA-Public Use
  Company Number: NO-APIL-2312128US

PATIENT
  Sex: Female

DRUGS (20)
  1. MEMANTINE [Suspect]
     Active Substance: MEMANTINE
     Indication: Hallucination, visual
  2. RASAGILINE [Suspect]
     Active Substance: RASAGILINE
     Indication: Dementia with Lewy bodies
     Dosage: UNK
  3. FLUPENTIXOL\MELITRACEN [Suspect]
     Active Substance: FLUPENTIXOL\MELITRACEN
     Indication: Panic attack
     Dosage: 21 MG, QD
  4. FLUPENTIXOL\MELITRACEN [Suspect]
     Active Substance: FLUPENTIXOL\MELITRACEN
     Dosage: 10.5 MG, QD
  5. DONEPEZIL [Suspect]
     Active Substance: DONEPEZIL
     Indication: Dementia Alzheimer^s type
     Dosage: UNK
  6. QUETIAPINE [Suspect]
     Active Substance: QUETIAPINE
     Indication: Dementia with Lewy bodies
     Dosage: 12.5 MG, QD
  7. BENSERAZIDE\LEVODOPA [Suspect]
     Active Substance: BENSERAZIDE\LEVODOPA
     Indication: Parkinsonism
     Dosage: IN 4 DOSES, 750 MG
  8. BENSERAZIDE\LEVODOPA [Suspect]
     Active Substance: BENSERAZIDE\LEVODOPA
     Dosage: IN 4 DOSES, 625 MG
  9. BENSERAZIDE\LEVODOPA [Suspect]
     Active Substance: BENSERAZIDE\LEVODOPA
     Dosage: IN 4 DOSES (AFTER REBOUND EFFECT), 750 MG
  10. GV-971 [Suspect]
     Active Substance: GV-971
     Indication: Panic attack
     Dosage: UNK
  11. LORAZEPAM [Suspect]
     Active Substance: LORAZEPAM
     Indication: Dementia with Lewy bodies
     Dosage: 1.5 MG
  12. GABAPENTIN [Suspect]
     Active Substance: GABAPENTIN
     Indication: Dementia with Lewy bodies
     Dosage: 1200 MG, QD
  13. VALPROIC ACID [Suspect]
     Active Substance: VALPROIC ACID
     Indication: Dementia with Lewy bodies
     Dosage: 200-400MG/DAY
  14. SERTRALINE [Concomitant]
     Active Substance: SERTRALINE HYDROCHLORIDE
     Indication: Panic attack
     Dosage: 50 MG, QD
  15. MIRTAZAPINE [Concomitant]
     Active Substance: MIRTAZAPINE
     Indication: Panic attack
     Dosage: 15 MG, QD
  16. RIVASTIGMINE [Concomitant]
     Active Substance: RIVASTIGMINE
     Indication: Discomfort
     Dosage: 9.5 MG, QD
     Route: 062
  17. RIVASTIGMINE [Concomitant]
     Active Substance: RIVASTIGMINE
     Indication: Dyspepsia
  18. PRAMIPEXOLE [Concomitant]
     Active Substance: PRAMIPEXOLE
     Indication: Product used for unknown indication
     Dosage: 0.5 MG, QD
  19. ESTAZOLAM [Concomitant]
     Active Substance: ESTAZOLAM
     Indication: Product used for unknown indication
     Dosage: 1 MG, QD
  20. SELEGILINE [Concomitant]
     Active Substance: SELEGILINE
     Indication: Dementia with Lewy bodies

REACTIONS (2)
  - Anxiety [Unknown]
  - Product use in unapproved indication [Unknown]
